FAERS Safety Report 20501398 (Version 1)
Quarter: 2022Q1

REPORT INFORMATION
  Report Type: Spontaneous
  Country: CN (occurrence: CN)
  Receive Date: 20220222
  Receipt Date: 20220222
  Transmission Date: 20220423
  Serious: Yes (Other)
  Sender: FDA-Public Use
  Company Number: CN-PFIZER INC-202200239331

PATIENT
  Age: 53 Year
  Sex: Female
  Weight: 54 kg

DRUGS (2)
  1. EPIRUBICIN HYDROCHLORIDE [Suspect]
     Active Substance: EPIRUBICIN HYDROCHLORIDE
     Indication: Invasive breast carcinoma
     Dosage: 140 MG, 1X/DAY
     Route: 041
     Dates: start: 20220112, end: 20220112
  2. CYCLOPHOSPHAMIDE [Suspect]
     Active Substance: CYCLOPHOSPHAMIDE
     Indication: Invasive breast carcinoma
     Dosage: 0.9 G, 1X/DAY
     Route: 041
     Dates: start: 20220112, end: 20220112

REACTIONS (3)
  - Oedema peripheral [Recovering/Resolving]
  - Fluid retention [Unknown]
  - Renal injury [Unknown]

NARRATIVE: CASE EVENT DATE: 20220113
